FAERS Safety Report 24793253 (Version 2)
Quarter: 2025Q2

REPORT INFORMATION
  Report Type: Report from Study
  Country: US (occurrence: US)
  Receive Date: 20241231
  Receipt Date: 20250425
  Transmission Date: 20250716
  Serious: No
  Sender: SUNOVION
  Company Number: US-SMPA-2024SPA006064AA

PATIENT

DRUGS (2)
  1. ORGOVYX [Suspect]
     Active Substance: RELUGOLIX
     Indication: Prostate cancer
     Dosage: 360 MG, SINGLE
     Route: 048
     Dates: start: 20240430, end: 20240430
  2. ORGOVYX [Suspect]
     Active Substance: RELUGOLIX
     Dosage: 120 MG, QD
     Route: 048
     Dates: start: 202404

REACTIONS (6)
  - Blood pressure decreased [Unknown]
  - Erectile dysfunction [Unknown]
  - Red blood cell count decreased [Unknown]
  - Loss of libido [Unknown]
  - Hot flush [Unknown]
  - Fatigue [Unknown]
